FAERS Safety Report 6147521-1 (Version None)
Quarter: 2009Q2

REPORT INFORMATION
  Report Type: 
  Country: None (occurrence: None)
  Receive Date: 20090408
  Receipt Date: 20090330
  Transmission Date: 20091009
  Serious: Yes (Hospitalization)
  Sender: FDA-Public Use
  Company Number: US-SOLVAY-00209001813

PATIENT
  Age: 58 Year
  Sex: Male
  Weight: 88.5 kg

DRUGS (8)
  1. UNSPECIFIED PAIN MEDICATIONS [Concomitant]
     Indication: FIBROMYALGIA
     Dosage: DAILY DOSE:  UNKNOWN
     Route: 048
  2. ANDROGEL [Suspect]
     Indication: BLOOD TESTOSTERONE DECREASED
     Dosage: DAILY DOSE: 5 GRAM(S)
     Route: 062
     Dates: start: 20000101, end: 20000101
  3. ANDROGEL [Suspect]
     Dosage: DAILY DOSE:  UNKNOWN
     Route: 062
     Dates: start: 20000101, end: 20000101
  4. ANDROGEL [Suspect]
     Dosage: DAILY DOSE: 12.5 GRAM(S)
     Route: 062
     Dates: start: 20000101, end: 20000101
  5. ANDROGEL [Suspect]
     Dosage: DAILY DOSE: 10 GRAM(S) VIA PUMP
     Route: 062
     Dates: start: 20040101
  6. UNSPECIFIED SLEEP MEDICATIONS [Concomitant]
     Indication: FIBROMYALGIA
     Dosage: DAILY DOSE:  UNKNOWN
     Route: 048
  7. SYNTHROID [Concomitant]
     Indication: THYROXINE DECREASED
     Dosage: DAILY DOSE: .15 MILLIGRAM(S)
     Route: 048
  8. MINOCYCLINE HCL [Concomitant]
     Indication: ACNE
     Dosage: DAILY DOSE:  UNKNOWN
     Route: 048

REACTIONS (3)
  - CORONARY ARTERY OCCLUSION [None]
  - DRUG LEVEL THERAPEUTIC [None]
  - NOCTURNAL DYSPNOEA [None]
